FAERS Safety Report 6621693-4 (Version None)
Quarter: 2010Q1

REPORT INFORMATION
  Report Type: 
  Country: None (occurrence: None)
  Receive Date: 20100223
  Receipt Date: 20100112
  Transmission Date: 20100710
  Serious: No
  Sender: FDA-Public Use
  Company Number: 004059

PATIENT
  Sex: Female

DRUGS (1)
  1. CIMZIA [Suspect]
     Dosage: (400MG SUBCUTANEOUS)
     Route: 058

REACTIONS (2)
  - INJECTION SITE PAIN [None]
  - NEEDLE ISSUE [None]
